FAERS Safety Report 24985849 (Version 1)
Quarter: 2025Q1

REPORT INFORMATION
  Report Type: Spontaneous
  Country: GB (occurrence: GB)
  Receive Date: 20250219
  Receipt Date: 20250219
  Transmission Date: 20250409
  Serious: Yes (Other)
  Sender: CIPLA
  Company Number: GB-MHRA-MED-202502122225079440-NQPKZ

PATIENT

DRUGS (1)
  1. FINASTERIDE [Suspect]
     Active Substance: FINASTERIDE
     Indication: Alopecia
     Dosage: 1 MILLIGRAM, QD (1MG ONCE A DAY)
     Route: 065
     Dates: start: 20240717

REACTIONS (2)
  - Depressed mood [Recovering/Resolving]
  - Erectile dysfunction [Recovering/Resolving]

NARRATIVE: CASE EVENT DATE: 20250110
